FAERS Safety Report 12477392 (Version 1)
Quarter: 2016Q2

REPORT INFORMATION
  Report Type: Spontaneous
  Country: NL (occurrence: NL)
  Receive Date: 20160617
  Receipt Date: 20160617
  Transmission Date: 20160815
  Serious: Yes (Hospitalization, Other)
  Sender: FDA-Public Use
  Company Number: NL-009507513-1606NLD007712

PATIENT
  Sex: Female

DRUGS (1)
  1. IMPLANON [Suspect]
     Active Substance: ETONOGESTREL
     Route: 059

REACTIONS (5)
  - Complication of device removal [Recovered/Resolved]
  - Device dislocation [Recovered/Resolved]
  - Device deployment issue [Recovered/Resolved]
  - Incorrect route of drug administration [Recovered/Resolved]
  - General anaesthesia [Unknown]
